FAERS Safety Report 5121184-6 (Version None)
Quarter: 2006Q4

REPORT INFORMATION
  Report Type: 
  Country: None (occurrence: None)
  Receive Date: 20061005
  Receipt Date: 20051018
  Transmission Date: 20070319
  Serious: Yes (Other)
  Sender: FDA-Public Use
  Company Number: US-GILEAD-2005-0008878

PATIENT
  Age: 42 Year
  Sex: Male

DRUGS (1)
  1. HEPSERA [Suspect]
     Indication: HEPATITIS B
     Route: 048

REACTIONS (3)
  - BLOOD BILIRUBIN INCREASED [None]
  - DRUG RESISTANCE [None]
  - HBV DNA INCREASED [None]
